FAERS Safety Report 5624857-1 (Version None)
Quarter: 2008Q1

REPORT INFORMATION
  Report Type: 
  Country: None (occurrence: None)
  Receive Date: 20080213
  Receipt Date: 20080211
  Transmission Date: 20080703
  Serious: Yes (Hospitalization, Other)
  Sender: FDA-Public Use
  Company Number: GB-JNJFOC-20080100562

PATIENT
  Sex: Male
  Weight: 11 kg

DRUGS (7)
  1. TOPAMAX [Suspect]
     Route: 048
  2. TOPAMAX [Suspect]
     Indication: EPILEPSY
     Route: 048
  3. UNSPECIFIED MEDICATION [Concomitant]
     Route: 065
  4. SEPTRIN [Concomitant]
     Indication: PROPHYLAXIS
     Route: 065
  5. VALPROATE SODIUM [Concomitant]
     Indication: DRUG USE FOR UNKNOWN INDICATION
     Route: 065
  6. GLYCOPYRRONIUM [Concomitant]
     Indication: SALIVARY HYPERSECRETION
     Route: 065
  7. VIGABATRIN [Concomitant]
     Indication: EPILEPSY
     Route: 065

REACTIONS (1)
  - PYREXIA [None]
